FAERS Safety Report 9466838 (Version 1)
Quarter: 2013Q3

REPORT INFORMATION
  Report Type: Spontaneous
  Country: GB (occurrence: GB)
  Receive Date: 20130820
  Receipt Date: 20130820
  Transmission Date: 20140515
  Serious: Yes (Other)
  Sender: FDA-Public Use
  Company Number: GB-UCBSA-095235

PATIENT
  Age: 56 Year
  Sex: Female
  Weight: 51.9 kg

DRUGS (6)
  1. CIMZIA [Suspect]
     Indication: RHEUMATOID ARTHRITIS
     Dosage: DOSE:200 MG
     Route: 058
     Dates: start: 20120824, end: 20121019
  2. ALENDRONIC ACID [Concomitant]
  3. DEXCEL-PHARMA OMEPRAZOLE [Concomitant]
  4. FERROUS FUMARATE [Concomitant]
  5. LEFLUNOMIDE [Concomitant]
  6. LISINOPRIL [Concomitant]

REACTIONS (2)
  - Transient ischaemic attack [Recovering/Resolving]
  - Muscular weakness [Unknown]
